FAERS Safety Report 9434178 (Version 1)
Quarter: 2013Q3

REPORT INFORMATION
  Report Type: Spontaneous
  Country: US (occurrence: None)
  Receive Date: 20130730
  Receipt Date: 20130730
  Transmission Date: 20140515
  Serious: Yes (Other)
  Sender: FDA-Public Use
  Company Number: None

PATIENT
  Age: 60 Year
  Sex: Female

DRUGS (1)
  1. ENBREL SURECLICK 50MG AMGEN INC [Suspect]
     Indication: RHEUMATOID ARTHRITIS
     Dosage: 50 MG QWEEK SQ
     Route: 058

REACTIONS (8)
  - Nausea [None]
  - Injection site erythema [None]
  - Injection site swelling [None]
  - Pain in extremity [None]
  - Arthralgia [None]
  - Superficial vein prominence [None]
  - Injection site pain [None]
  - Injection site urticaria [None]
